FAERS Safety Report 6193776-7 (Version None)
Quarter: 2009Q2

REPORT INFORMATION
  Report Type: 
  Country: None (occurrence: None)
  Receive Date: 20090518
  Receipt Date: 20090512
  Transmission Date: 20091009
  Serious: Yes (Hospitalization)
  Sender: FDA-Public Use
  Company Number: GB-ABBOTT-09P-167-0573154-00

PATIENT
  Age: 97 Year
  Sex: Female
  Weight: 57.7 kg

DRUGS (5)
  1. CLARITHROMYCIN [Suspect]
     Indication: PNEUMONIA
     Dates: start: 20090331, end: 20090403
  2. CHLORAMPHENICOL [Concomitant]
     Indication: BLEPHARITIS
     Dates: start: 20090331
  3. ASPIRIN [Concomitant]
     Indication: ATRIAL FIBRILLATION
  4. LANTANOPROST [Concomitant]
     Indication: GLAUCOMA
  5. TELMISARTAN [Concomitant]
     Indication: HYPERTENSION

REACTIONS (1)
  - HYPONATRAEMIA [None]
